FAERS Safety Report 4822328-3 (Version None)
Quarter: 2005Q4

REPORT INFORMATION
  Report Type: 
  Country: None (occurrence: None)
  Receive Date: 20051103
  Receipt Date: 20051021
  Transmission Date: 20060501
  Serious: Yes (Hospitalization)
  Sender: FDA-Public Use
  Company Number: 200510IM000646

PATIENT
  Age: 58 Year
  Sex: Female

DRUGS (2)
  1. INFERGEN [Suspect]
     Indication: HEPATITIS C
     Dosage: 15 UG, QD, SUBCUTANEOUS
     Route: 058
     Dates: start: 20041123, end: 20051010
  2. RIBAVIRIN [Concomitant]

REACTIONS (4)
  - ANAEMIA [None]
  - MYOCARDIAL INFARCTION [None]
  - TREATMENT NONCOMPLIANCE [None]
  - WEIGHT DECREASED [None]
